FAERS Safety Report 16180530 (Version 1)
Quarter: 2019Q2

REPORT INFORMATION
  Report Type: Spontaneous
  Country: US (occurrence: US)
  Receive Date: 20190410
  Receipt Date: 20190410
  Transmission Date: 20190711
  Serious: Yes (Death, Other)
  Sender: FDA-Public Use
  Company Number: US-SA-2019SA098140

PATIENT
  Age: 6 Month

DRUGS (1)
  1. ICY HOT (MENTHOL) [Suspect]
     Active Substance: MENTHOL
     Indication: ACCIDENTAL EXPOSURE TO PRODUCT
     Dosage: UNK UNK, 1X

REACTIONS (2)
  - Accidental exposure to product [Fatal]
  - Asphyxia [Fatal]
